FAERS Safety Report 14649079 (Version 2)
Quarter: 2018Q1

REPORT INFORMATION
  Report Type: Spontaneous
  Country: CA (occurrence: CA)
  Receive Date: 20180316
  Receipt Date: 20180323
  Transmission Date: 20180509
  Serious: Yes (Other)
  Sender: FDA-Public Use
  Company Number: CA-REGENERON PHARMACEUTICALS, INC.-2018-18084

PATIENT

DRUGS (1)
  1. EYLEA [Suspect]
     Active Substance: AFLIBERCEPT
     Indication: PRODUCT USED FOR UNKNOWN INDICATION
     Dosage: LAST EYLEA DOSE WAS RECEIVED ON 28-FEB-2018
     Route: 031

REACTIONS (2)
  - Blindness unilateral [Unknown]
  - Endophthalmitis [Unknown]

NARRATIVE: CASE EVENT DATE: 20180305
